FAERS Safety Report 10433710 (Version 1)
Quarter: 2014Q3

REPORT INFORMATION
  Report Type: Spontaneous
  Country: US (occurrence: None)
  Receive Date: 20140815
  Receipt Date: 20140815
  Transmission Date: 20150326
  Serious: No
  Sender: FDA-Public Use
  Company Number: A-US2014-100717

PATIENT
  Age: 64 Year
  Sex: Female

DRUGS (10)
  1. ONDANSETRON. [Concomitant]
     Active Substance: ONDANSETRON
  2. ZOLPIDEM (ZOLPIDEM) [Concomitant]
     Active Substance: ZOLPIDEM TARTRATE
  3. WARFARIN (WARFARIN) [Concomitant]
     Active Substance: WARFARIN
  4. OMEPRAZOLE (OMEPRAZOLE) [Concomitant]
     Active Substance: OMEPRAZOLE
  5. BUMETANIDE (BUMETANIDE) [Concomitant]
     Active Substance: BUMETANIDE
  6. OPSUMIT [Suspect]
     Active Substance: MACITENTAN
     Indication: PRODUCT USED FOR UNKNOWN INDICATION
     Route: 048
     Dates: start: 20140603
  7. KLOR-CON (POTASSIUM CHLORIDE) [Concomitant]
  8. CLONAZEPAM (CLONAZEPAM) [Concomitant]
  9. METOLAZONE (METOLAZONE) [Concomitant]
  10. METOPROLOL (METOPROLOL) [Concomitant]
     Active Substance: METOPROLOL

REACTIONS (3)
  - Urinary tract infection [None]
  - Headache [None]
  - Hypotension [None]

NARRATIVE: CASE EVENT DATE: 20140612
